FAERS Safety Report 17143369 (Version 9)
Quarter: 2022Q2

REPORT INFORMATION
  Report Type: Report from Study
  Country: FR (occurrence: FR)
  Receive Date: 20191212
  Receipt Date: 20220420
  Transmission Date: 20220721
  Serious: Yes (Hospitalization, Other)
  Sender: FDA-Public Use
  Company Number: FR-NOVPHSZ-PHHY2019FR165504

PATIENT
  Age: 69 Year
  Sex: Male
  Weight: 61 kg

DRUGS (14)
  1. MYCOPHENOLATE MOFETIL [Suspect]
     Active Substance: MYCOPHENOLATE MOFETIL
     Indication: Immunosuppression
     Dosage: 1 G, BID (X2/DAY)
     Route: 065
     Dates: start: 20190330
  2. MYCOPHENOLATE MOFETIL [Suspect]
     Active Substance: MYCOPHENOLATE MOFETIL
     Indication: Renal transplant
     Dosage: 1000 MILLIGRAM
     Dates: start: 20190630, end: 20190704
  3. MYCOPHENOLATE MOFETIL [Suspect]
     Active Substance: MYCOPHENOLATE MOFETIL
     Dosage: 1000 MILLIGRAM
     Dates: start: 20190710
  4. PREDNISONE [Suspect]
     Active Substance: PREDNISONE
     Indication: Immunosuppression
     Dosage: 10 MG, QD
     Route: 065
     Dates: start: 20190330
  5. MYCOPHENOLATE MOFETIL [Suspect]
     Active Substance: MYCOPHENOLATE MOFETIL
     Indication: Renal transplant
     Dosage: 1000 MILLIGRAM
     Route: 065
     Dates: start: 20190710
  6. MYCOPHENOLATE MOFETIL [Suspect]
     Active Substance: MYCOPHENOLATE MOFETIL
     Indication: Immunosuppression
     Dosage: 1000 MILLIGRAM
     Route: 065
     Dates: start: 20190330, end: 20190704
  7. TACROLIMUS [Suspect]
     Active Substance: TACROLIMUS
     Indication: Renal transplant
     Dosage: 12 MG, UNK
     Route: 048
     Dates: start: 20190330
  8. TACROLIMUS [Suspect]
     Active Substance: TACROLIMUS
     Dosage: 32 MG, UNK
     Route: 048
     Dates: start: 20190330
  9. TACROLIMUS [Suspect]
     Active Substance: TACROLIMUS
     Dosage: 12 MG, UNK
     Route: 048
     Dates: start: 20190330
  10. TACROLIMUS [Suspect]
     Active Substance: TACROLIMUS
     Dosage: 40 MILLIGRAM
     Route: 048
     Dates: start: 20190928
  11. TACROLIMUS [Suspect]
     Active Substance: TACROLIMUS
     Dosage: 32 MILLIGRAM
     Route: 048
     Dates: start: 20190806
  12. TACROLIMUS [Suspect]
     Active Substance: TACROLIMUS
     Dosage: 40 MILLIGRAM
     Route: 048
     Dates: start: 20191030
  13. ANAKINRA [Concomitant]
     Active Substance: ANAKINRA
     Indication: Gout
     Dosage: UNK
     Route: 065
     Dates: start: 2011
  14. PREDNISONE [Concomitant]
     Active Substance: PREDNISONE
     Indication: Renal transplant failure
     Dosage: 10 MILLIGRAM
     Route: 065
     Dates: start: 20190330

REACTIONS (7)
  - Renal impairment [Recovered/Resolved]
  - Pulmonary tuberculosis [Recovering/Resolving]
  - Pneumonia [Recovering/Resolving]
  - Pancytopenia [Recovered/Resolved]
  - Prostatitis [Recovered/Resolved]
  - Pyelonephritis [Recovered/Resolved]
  - Disseminated tuberculosis [Recovering/Resolving]

NARRATIVE: CASE EVENT DATE: 20190621
